FAERS Safety Report 7608494-5 (Version None)
Quarter: 2011Q3

REPORT INFORMATION
  Report Type: 
  Country: None (occurrence: None)
  Receive Date: 20110714
  Receipt Date: 20110705
  Transmission Date: 20111222
  Serious: Yes (Hospitalization, Other)
  Sender: FDA-Public Use
  Company Number: US-BAYER-201018574NA

PATIENT
  Sex: Female
  Weight: 118 kg

DRUGS (12)
  1. ZOFRAN [Concomitant]
     Dosage: 16 MG, UNK
     Route: 042
     Dates: start: 20080722
  2. CEFTAZIDIME [Concomitant]
     Dosage: 2 G, UNK
     Route: 042
     Dates: start: 20080723
  3. YAZ [Suspect]
     Indication: PRODUCT USED FOR UNKNOWN INDICATION
     Dosage: UNK UNK, UNK
     Route: 048
     Dates: start: 20060101, end: 20090101
  4. DROSPIRENONE AND ETHINYL ESTRADIOL [Suspect]
     Dosage: UNK
     Dates: start: 20060101, end: 20090101
  5. PHENTERMINE [Concomitant]
     Dosage: 15 MG, UNK
     Route: 048
  6. OXYCODONE [Concomitant]
     Dosage: 5-15 MG
     Route: 048
     Dates: start: 20061101
  7. REGLAN [Concomitant]
     Dosage: 20 MG, UNK
     Route: 042
     Dates: start: 20080722
  8. YASMIN [Suspect]
     Indication: PRODUCT USED FOR UNKNOWN INDICATION
     Dosage: UNK UNK, UNK
     Route: 048
     Dates: start: 20060101, end: 20090101
  9. DROSPIRENONE AND ETHINYL ESTRADIOL [Suspect]
     Dosage: UNK
     Dates: start: 20081204, end: 20090223
  10. DECADRON [Concomitant]
     Dosage: 20 MG, UNK
     Route: 042
     Dates: start: 20080722
  11. VANCOMYCIN [Concomitant]
     Dosage: 1 G, UNK
     Route: 042
     Dates: start: 20080723
  12. HYDROMORPHONE HCL [Concomitant]
     Indication: ANALGESIC THERAPY
     Dosage: MAX. 6MG/HOUR
     Dates: start: 20080723

REACTIONS (2)
  - ABDOMINAL PAIN UPPER [None]
  - CHOLECYSTITIS CHRONIC [None]
